FAERS Safety Report 5658955-3 (Version None)
Quarter: 2008Q1

REPORT INFORMATION
  Report Type: 
  Country: None (occurrence: None)
  Receive Date: 20080310
  Receipt Date: 20070515
  Transmission Date: 20080703
  Serious: No
  Sender: FDA-Public Use
  Company Number: US-BAYER-200711544BCC

PATIENT
  Age: 84 Year
  Sex: Female
  Weight: 58 kg

DRUGS (5)
  1. ALEVE [Suspect]
     Indication: ARTHRALGIA
     Dosage: TOTAL DAILY DOSE: 220 MG  UNIT DOSE: 220 MG
     Route: 048
     Dates: start: 20070511
  2. LIPITOR [Concomitant]
  3. CARDIZEM [Concomitant]
  4. ACTOS [Concomitant]
  5. PRANDIN [Concomitant]

REACTIONS (1)
  - GINGIVAL BLEEDING [None]
